FAERS Safety Report 20070931 (Version 2)
Quarter: 2022Q1

REPORT INFORMATION
  Report Type: Spontaneous
  Country: US (occurrence: US)
  Receive Date: 20211115
  Receipt Date: 20220120
  Transmission Date: 20220424
  Serious: Yes (Hospitalization, Disabling)
  Sender: FDA-Public Use
  Company Number: US-TEVA-2021-US-1977460

PATIENT
  Age: 37 Year
  Sex: Male

DRUGS (4)
  1. HYDROMORPHONE [Suspect]
     Active Substance: HYDROMORPHONE
     Indication: Drug abuse
     Dosage: THE PATIENT HAD INJECTED INTRA-ARTERIAL CRUSHED PARTICLES OF HYDROMORPHONE TABLET INTO HIS LEFT W...
     Route: 013
  2. NITROGLYCERIN [Suspect]
     Active Substance: NITROGLYCERIN
     Indication: Peripheral arterial occlusive disease
     Route: 065
  3. VERAPAMIL [Suspect]
     Active Substance: VERAPAMIL HYDROCHLORIDE
     Indication: Peripheral arterial occlusive disease
     Route: 065
  4. HEPARIN [Concomitant]
     Active Substance: HEPARIN SODIUM
     Indication: Anticoagulant therapy
     Route: 042

REACTIONS (4)
  - Peripheral arterial occlusive disease [Recovering/Resolving]
  - Peripheral ischaemia [Recovering/Resolving]
  - Drug ineffective [Unknown]
  - Drug abuse [Unknown]
